FAERS Safety Report 5917898-8 (Version None)
Quarter: 2008Q4

REPORT INFORMATION
  Report Type: 
  Country: None (occurrence: None)
  Receive Date: 20081014
  Receipt Date: 20080912
  Transmission Date: 20090506
  Serious: No
  Sender: FDA-Public Use
  Company Number: US-ABBOTT-07P-163-0431635-00

PATIENT
  Sex: Female

DRUGS (4)
  1. KALETRA [Suspect]
     Indication: DRUG EXPOSURE DURING PREGNANCY
     Route: 064
  2. ATRIPLA [Suspect]
     Indication: DRUG EXPOSURE DURING PREGNANCY
     Route: 064
  3. NEVIRAPINE [Suspect]
     Indication: DRUG EXPOSURE DURING PREGNANCY
     Route: 064
  4. TRUVADA [Suspect]
     Indication: DRUG EXPOSURE DURING PREGNANCY
     Route: 064

REACTIONS (1)
  - PREMATURE BABY [None]
